FAERS Safety Report 10099537 (Version 1)
Quarter: 2014Q2

REPORT INFORMATION
  Report Type: Spontaneous
  Country: CN (occurrence: CN)
  Receive Date: 20140423
  Receipt Date: 20140423
  Transmission Date: 20141212
  Serious: Yes (Hospitalization, Other)
  Sender: FDA-Public Use
  Company Number: CN-BAYER-2014-058174

PATIENT
  Age: 65 Year
  Sex: Male

DRUGS (1)
  1. ULTRAVIST 370 [Suspect]
     Indication: ARTERIOGRAM CORONARY
     Dosage: 100 ML, UNK
     Dates: start: 20140407

REACTIONS (9)
  - Anaphylactic shock [Recovering/Resolving]
  - Chest discomfort [Recovering/Resolving]
  - Hyperhidrosis [Recovering/Resolving]
  - Blood pressure decreased [Recovering/Resolving]
  - Breath sounds abnormal [Recovering/Resolving]
  - Mental disorder [Recovering/Resolving]
  - Electrocardiogram Q wave abnormal [Recovering/Resolving]
  - Electrocardiogram ST segment elevation [Recovering/Resolving]
  - Atrioventricular block [Recovering/Resolving]
